FAERS Safety Report 5478865-4 (Version None)
Quarter: 2007Q4

REPORT INFORMATION
  Report Type: 
  Country: None (occurrence: None)
  Receive Date: 20071002
  Receipt Date: 20070918
  Transmission Date: 20080405
  Serious: Yes (Other)
  Sender: FDA-Public Use
  Company Number: 018531

PATIENT
  Age: 68 Year
  Sex: Male

DRUGS (4)
  1. WARFARIN SODIUM [Suspect]
     Indication: THROMBOSIS
     Dosage: 40 MG, WEEKLY, ORAL : 40 MG, WEEKLY, ORAL
     Route: 048
     Dates: start: 20061001
  2. ATENOLOL [Concomitant]
  3. ASPIRIN [Concomitant]
  4. UROXATRAL [Concomitant]

REACTIONS (4)
  - BLADDER CANCER [None]
  - BRONCHITIS [None]
  - COUGH [None]
  - DYSPHONIA [None]
